FAERS Safety Report 11124255 (Version 1)
Quarter: 2015Q2

REPORT INFORMATION
  Report Type: Spontaneous
  Country: US (occurrence: US)
  Receive Date: 20150520
  Receipt Date: 20150520
  Transmission Date: 20150821
  Serious: No
  Sender: FDA-Public Use
  Company Number: US-009507513-1505USA003238

PATIENT
  Age: 65 Year
  Sex: Male

DRUGS (3)
  1. NASONEX [Concomitant]
     Active Substance: MOMETASONE FUROATE
  2. ASMANEX [Suspect]
     Active Substance: MOMETASONE FUROATE
     Indication: ASTHMA
     Dosage: ONE PUFF, TWICE DAILY
     Route: 055
  3. FORADIL [Concomitant]
     Active Substance: FORMOTEROL FUMARATE

REACTIONS (1)
  - Oral candidiasis [Recovering/Resolving]

NARRATIVE: CASE EVENT DATE: 201406
